FAERS Safety Report 13068842 (Version 2)
Quarter: 2017Q1

REPORT INFORMATION
  Report Type: Spontaneous
  Country: FR (occurrence: FR)
  Receive Date: 20161228
  Receipt Date: 20170120
  Transmission Date: 20170428
  Serious: Yes (Hospitalization, Disabling)
  Sender: FDA-Public Use
  Company Number: FR-EISAI MEDICAL RESEARCH-EC-2016-022854

PATIENT
  Age: 59 Year
  Sex: Female
  Weight: 52.2 kg

DRUGS (3)
  1. MEDROL [Concomitant]
     Active Substance: METHYLPREDNISOLONE
     Indication: PRODUCT USED FOR UNKNOWN INDICATION
     Route: 048
     Dates: start: 20160930, end: 20161027
  2. HALAVEN [Suspect]
     Active Substance: ERIBULIN MESYLATE
     Indication: BREAST CANCER STAGE IV
     Route: 041
     Dates: start: 20160930, end: 20161027
  3. ZOPHREN [Concomitant]
     Active Substance: ONDANSETRON
     Indication: PRODUCT USED FOR UNKNOWN INDICATION
     Route: 048
     Dates: start: 20160930, end: 20161027

REACTIONS (1)
  - Guillain-Barre syndrome [Recovering/Resolving]

NARRATIVE: CASE EVENT DATE: 20161104
